FAERS Safety Report 7562864-2 (Version None)
Quarter: 2011Q2

REPORT INFORMATION
  Report Type: 
  Country: None (occurrence: None)
  Receive Date: 20110615
  Receipt Date: 20110606
  Transmission Date: 20111010
  Serious: Yes (Hospitalization)
  Sender: FDA-Public Use
  Company Number: COL_09004_2011

PATIENT
  Age: 52 Year
  Sex: Female

DRUGS (1)
  1. COLGATE BAKING SODA AND PEROXIDE WHITENING OXYGEN BUBBLES UNSPECIFIED [Suspect]
     Indication: DENTAL CARIES
     Dosage: USED AS DIRECTED/ORAL
     Route: 048

REACTIONS (1)
  - BLOOD GLUCOSE INCREASED [None]
